FAERS Safety Report 21920511 (Version 1)
Quarter: 2023Q1

REPORT INFORMATION
  Report Type: Spontaneous
  Country: JP (occurrence: JP)
  Receive Date: 20230127
  Receipt Date: 20230127
  Transmission Date: 20230418
  Serious: Yes (Hospitalization)
  Sender: FDA-Public Use
  Company Number: JP-ABBVIE-4285059

PATIENT
  Age: 68 Year
  Sex: Female

DRUGS (1)
  1. RINVOQ [Suspect]
     Active Substance: UPADACITINIB
     Indication: Rheumatoid arthritis
     Dosage: DURATION TEXT 1 TO 2 YEARS
     Route: 048
     Dates: end: 20230118

REACTIONS (5)
  - Interstitial lung disease [Unknown]
  - Musculoskeletal chest pain [Unknown]
  - Pruritus [Unknown]
  - Pneumonitis [Unknown]
  - White blood cell count increased [Unknown]

NARRATIVE: CASE EVENT DATE: 20230118
